FAERS Safety Report 14290043 (Version 2)
Quarter: 2025Q4

REPORT INFORMATION
  Report Type: Report from Study
  Country: US (occurrence: US)
  Receive Date: 20171214
  Receipt Date: 20251030
  Transmission Date: 20260118
  Serious: Yes (Hospitalization, Other)
  Sender: JAZZ
  Company Number: US-JAZZ-2017-US-016172

PATIENT
  Sex: Male
  Weight: 88 kg

DRUGS (2)
  1. XYREM [Suspect]
     Active Substance: SODIUM OXYBATE
     Indication: Narcolepsy
     Dosage: 2.5 GRAM, BID
     Dates: start: 201711, end: 2017
  2. XYREM [Suspect]
     Active Substance: SODIUM OXYBATE
     Indication: Cataplexy
     Dosage: UNK

REACTIONS (6)
  - Seizure [Recovered/Resolved]
  - Eye contusion [Unknown]
  - Ligament sprain [Unknown]
  - Abnormal behaviour [Unknown]
  - Hyperhidrosis [Unknown]
  - Confusional state [Unknown]

NARRATIVE: CASE EVENT DATE: 20170101
